FAERS Safety Report 9530326 (Version 1)
Quarter: 2013Q3

REPORT INFORMATION
  Report Type: Spontaneous
  Country: US (occurrence: US)
  Receive Date: 20130917
  Receipt Date: 20130917
  Transmission Date: 20140515
  Serious: No
  Sender: FDA-Public Use
  Company Number: US-B.I. PHARMACEUTICALS,INC./RIDGEFIELD-2013-BI-27882BP

PATIENT
  Age: 84 Year
  Sex: Female

DRUGS (8)
  1. CATAPRES [Suspect]
     Indication: HYPERTENSION
     Dosage: 0.05 MG
     Route: 048
     Dates: start: 20130824
  2. LISINOPRIL/HCTZ [Concomitant]
     Route: 048
  3. TRIMETHOPRIM [Concomitant]
     Route: 048
  4. ASPIRIN [Concomitant]
     Route: 048
  5. BENEDRYL [Concomitant]
     Route: 048
  6. METFORMIN [Concomitant]
     Indication: DIABETES MELLITUS
     Route: 048
  7. PROBIOTIC [Concomitant]
     Route: 048
  8. METAMUCIL [Concomitant]
     Route: 048

REACTIONS (1)
  - Blood pressure increased [Recovered/Resolved]
